FAERS Safety Report 18793482 (Version 1)
Quarter: 2021Q1

REPORT INFORMATION
  Report Type: Spontaneous
  Country: IT (occurrence: IT)
  Receive Date: 20210127
  Receipt Date: 20210127
  Transmission Date: 20210419
  Serious: Yes (Hospitalization)
  Sender: FDA-Public Use
  Company Number: IT-PFIZER INC-2021055684

PATIENT
  Age: 20 Year
  Sex: Male

DRUGS (2)
  1. LENDORMIN [Suspect]
     Active Substance: BROTIZOLAM
     Dosage: 7.25 MG, TOTAL
     Route: 048
     Dates: start: 20210110, end: 20210110
  2. XANAX [Suspect]
     Active Substance: ALPRAZOLAM
     Dosage: 15 MG, TOTAL
     Route: 048
     Dates: start: 20210110, end: 20210110

REACTIONS (4)
  - Intentional overdose [Recovering/Resolving]
  - Toxicity to various agents [Recovering/Resolving]
  - Alcohol abuse [Recovering/Resolving]
  - Sopor [Recovering/Resolving]

NARRATIVE: CASE EVENT DATE: 20210110
